FAERS Safety Report 6669597-5 (Version None)
Quarter: 2010Q2

REPORT INFORMATION
  Report Type: 
  Country: None (occurrence: None)
  Receive Date: 20100406
  Receipt Date: 20100325
  Transmission Date: 20101027
  Serious: Yes (Other)
  Sender: FDA-Public Use
  Company Number: NL-PFIZER INC-2010038204

PATIENT
  Age: 56 Year
  Sex: Male
  Weight: 80 kg

DRUGS (12)
  1. SUTENT [Suspect]
     Indication: RENAL CANCER
     Dosage: 50 MG, 1X/DAY
     Dates: start: 20071201
  2. SUTENT [Suspect]
     Dosage: 37.5 MG, 1X/DAY
     Dates: start: 20090301
  3. DEXAMETHASONE [Suspect]
     Indication: BRAIN OEDEMA
     Dosage: 4 MG, UNK
  4. HYDROCHLOROTHIAZIDE/METOPROLOL SUCCINATE [Concomitant]
     Dosage: 100 MG, 1X/DAY
  5. AMLODIPINE [Concomitant]
     Dosage: 10 MG, 1X/DAY
  6. CAPTOPRIL [Concomitant]
     Dosage: 50 MG, 2X/DAY
  7. BRICANYL [Concomitant]
  8. RHINOCORT [Concomitant]
  9. SYMBICORT [Concomitant]
  10. SLOW-K [Concomitant]
     Dosage: 600 MG, 1X/DAY
  11. SINGULAIR ^DIECKMANN^ [Concomitant]
     Dosage: 10 MG, 1X/DAY
  12. NEXIUM [Concomitant]
     Dosage: 20 MG, 1X/DAY

REACTIONS (10)
  - BRAIN OEDEMA [None]
  - CONTUSION [None]
  - DISEASE PROGRESSION [None]
  - EMBOLISM [None]
  - HAEMORRHAGE [None]
  - NAUSEA [None]
  - OEDEMA PERIPHERAL [None]
  - PERIPHERAL EMBOLISM [None]
  - PULMONARY EMBOLISM [None]
  - RENAL CANCER [None]
